FAERS Safety Report 4885814-6 (Version None)
Quarter: 2006Q1

REPORT INFORMATION
  Report Type: 
  Country: None (occurrence: None)
  Receive Date: 20060120
  Receipt Date: 20050711
  Transmission Date: 20060701
  Serious: Yes (Other)
  Sender: FDA-Public Use
  Company Number: PHEH2005US07668

PATIENT

DRUGS (1)
  1. AREDIA [Suspect]

REACTIONS (1)
  - OSTEONECROSIS [None]
